FAERS Safety Report 12255166 (Version 1)
Quarter: 2016Q2

REPORT INFORMATION
  Report Type: Spontaneous
  Country: GB (occurrence: GB)
  Receive Date: 20160412
  Receipt Date: 20160412
  Transmission Date: 20160815
  Serious: Yes (Other)
  Sender: FDA-Public Use
  Company Number: PHHY2016GB045336

PATIENT
  Age: 12 Year
  Sex: Female

DRUGS (1)
  1. CEFTRIAXONE. [Suspect]
     Active Substance: CEFTRIAXONE
     Indication: PRODUCT USED FOR UNKNOWN INDICATION
     Dosage: 2 G, UNK
     Route: 042
     Dates: start: 20160217, end: 20160217

REACTIONS (4)
  - Dyspnoea [Unknown]
  - Rash [Unknown]
  - Condition aggravated [Unknown]
  - Stridor [Unknown]

NARRATIVE: CASE EVENT DATE: 20160217
